FAERS Safety Report 4485027-6 (Version None)
Quarter: 2004Q3

REPORT INFORMATION
  Report Type: 
  Country: None (occurrence: None)
  Receive Date: 20040921
  Receipt Date: 20040218
  Transmission Date: 20050211
  Serious: Yes (Hospitalization)
  Sender: FDA-Public Use
  Company Number: 163-20785-04020537

PATIENT
  Age: 58 Year
  Sex: Female
  Weight: 77.1115 kg

DRUGS (9)
  1. THALOMID [Suspect]
     Indication: GLIOBLASTOMA MULTIFORME
     Dosage: 200-500 MG, DAILY, ORAL
     Route: 048
     Dates: start: 20030928, end: 20031020
  2. TEMOZOLOMIDE (TEMOZOLOMIDE) [Suspect]
     Indication: GLIOBLASTOMA MULTIFORME
     Dosage: 360 MG, DAILY FOR 5 DAYS EVERY 28 DAYS
     Dates: start: 20030928, end: 20040122
  3. CELEBREX [Suspect]
     Indication: GLIOBLASTOMA MULTIFORME
     Dosage: 400 MG, BID, ORAL
     Route: 048
     Dates: start: 20030928
  4. KLONOPIN [Concomitant]
  5. PROZAC [Concomitant]
  6. PRILOSEC [Concomitant]
  7. DILANTIN [Concomitant]
  8. FRAGMIN [Concomitant]
  9. NEXIUM [Concomitant]

REACTIONS (3)
  - GRAND MAL CONVULSION [None]
  - HYPERSENSITIVITY [None]
  - LABORATORY TEST ABNORMAL [None]
